FAERS Safety Report 6517165 (Version 4)
Quarter: 2020Q3

REPORT INFORMATION
  Report Type: Spontaneous
  Country: SE (occurrence: SE)
  Receive Date: 20071231
  Receipt Date: 20080215
  Transmission Date: 20201104
  Serious: Yes (Other)
  Sender: FDA-Public Use
  Company Number: SE-ROCHE-538384

PATIENT
  Age: 66 Year
  Sex: Female

DRUGS (20)
  1. CALCIUM CARBONATE. [Concomitant]
     Active Substance: CALCIUM CARBONATE
     Dosage: DOSE REPORTED AS D1X1
     Dates: start: 20051222
  2. PROVERA [Concomitant]
     Active Substance: MEDROXYPROGESTERONE ACETATE
     Dosage: DOSE: 500MG 1X2
     Dates: start: 20060210, end: 20060330
  3. CITALOPRAM [Concomitant]
     Active Substance: CITALOPRAM HYDROBROMIDE
     Dates: start: 20070716, end: 20071023
  4. CYCLOPHOSPHAMIDE. [Concomitant]
     Active Substance: CYCLOPHOSPHAMIDE
     Dates: start: 20060403, end: 20060425
  5. ZOLPIDEM TARTRATE. [Concomitant]
     Active Substance: ZOLPIDEM TARTRATE
     Dates: start: 20070307
  6. ESIDREX [Concomitant]
     Active Substance: HYDROCHLOROTHIAZIDE
     Dosage: DOSE: 25MGX1
  7. OXYNORM [Concomitant]
     Active Substance: OXYCODONE HYDROCHLORIDE
     Dates: start: 20071220
  8. FUROSEMIDE. [Concomitant]
     Active Substance: FUROSEMIDE
     Dates: start: 20061215
  9. IBANDRONIC ACID. [Suspect]
     Active Substance: IBANDRONIC ACID
     Dosage: DOSE: 50MGX1
     Route: 065
     Dates: start: 20051222, end: 20071204
  10. PREDNISOLONE. [Concomitant]
     Active Substance: PREDNISOLONE
     Dosage: AT PRESENT TAKING 10MG/DAY
     Dates: start: 20061215
  11. XELODA [Concomitant]
     Active Substance: CAPECITABINE
     Dates: start: 20061129
  12. CYCLOPHOSPHAMIDE. [Concomitant]
     Active Substance: CYCLOPHOSPHAMIDE
     Dosage: DOSE 50MGX1
     Dates: start: 20051222, end: 20060210
  13. METHOTREXATE. [Concomitant]
     Active Substance: METHOTREXATE
     Dosage: DOSE 2.5MG 1X2 3 DAYS PER WEEK
     Dates: start: 20051222, end: 20060210
  14. METHOTREXATE. [Concomitant]
     Active Substance: METHOTREXATE
     Dosage: DOSE 2.5MG 1X2 3 DAYS PER WEEK
     Dates: start: 20060402, end: 20060425
  15. ZESTRIL [Concomitant]
     Active Substance: LISINOPRIL
     Dosage: DOSE: 25MGX1
  16. ATENOLOL. [Concomitant]
     Active Substance: ATENOLOL
     Dosage: DOSE: 25MGX1
  17. VOLTAREN [Concomitant]
     Active Substance: DICLOFENAC SODIUM
  18. ACETAMINOPHEN. [Concomitant]
     Active Substance: ACETAMINOPHEN
     Dosage: DRUG NAME REPORTED AS PANODIL EXTEND
     Dates: start: 20061215
  19. ZOPICLONE [Concomitant]
     Active Substance: ZOPICLONE
     Dates: start: 20060511, end: 20070307
  20. POTASSIUM CHLORIDE. [Concomitant]
     Active Substance: POTASSIUM CHLORIDE
     Dates: start: 20070815

REACTIONS (1)
  - Osteonecrosis [Not Recovered/Not Resolved]

NARRATIVE: CASE EVENT DATE: 20071101
